FAERS Safety Report 15123983 (Version 1)
Quarter: 2018Q3

REPORT INFORMATION
  Report Type: Spontaneous
  Country: AT (occurrence: AT)
  Receive Date: 20180710
  Receipt Date: 20180710
  Transmission Date: 20181010
  Serious: Yes (Other)
  Sender: FDA-Public Use
  Company Number: AT-TEVA-2018-AT-920445

PATIENT
  Age: 28 Year
  Sex: Female
  Weight: 65 kg

DRUGS (34)
  1. LAMICTAL [Concomitant]
     Active Substance: LAMOTRIGINE
     Dosage: 175 MILLIGRAMS
     Dates: start: 20170117, end: 20170123
  2. LAMICTAL [Concomitant]
     Active Substance: LAMOTRIGINE
     Dosage: 100 MILLIGRAMS
     Dates: start: 20161227, end: 20170102
  3. INDERAL [Concomitant]
     Active Substance: PROPRANOLOL HYDROCHLORIDE
     Dosage: 10 MILLIGRAMS
     Dates: start: 20161215, end: 20161217
  4. TEMESTA (LORAZEPAM) [Concomitant]
     Active Substance: LORAZEPAM
     Dates: start: 20161226, end: 20161226
  5. CITALOPRAM [Suspect]
     Active Substance: CITALOPRAM HYDROBROMIDE
     Dosage: 10 MILLIGRAMS
     Route: 065
     Dates: start: 20161223, end: 20161224
  6. PRAXITEN [Suspect]
     Active Substance: OXAZEPAM
     Dosage: 30 MILLIGRAMS
     Route: 065
     Dates: start: 20161221, end: 20161223
  7. DOMINAL (PROTHIPENDYL HYDROCHLORIDE) [Suspect]
     Active Substance: PROTHIPENDYL HYDROCHLORIDE
     Dosage: 80 MG MILLIGRAM
     Route: 065
     Dates: start: 20161220, end: 20161226
  8. DOMINAL (PROTHIPENDYL HYDROCHLORIDE) [Suspect]
     Active Substance: PROTHIPENDYL HYDROCHLORIDE
     Dosage: 80 MILLIGRAMS
     Route: 065
     Dates: start: 20161215, end: 20161215
  9. LAMICTAL [Concomitant]
     Active Substance: LAMOTRIGINE
     Dosage: 25 MILLIGRAMS
     Dates: start: 201611, end: 20161212
  10. WELLBUTRIN [Concomitant]
     Active Substance: BUPROPION HYDROCHLORIDE
     Dosage: 150 MILLIGRAMS
     Dates: start: 20161207, end: 20161215
  11. LAMICTAL [Concomitant]
     Active Substance: LAMOTRIGINE
     Dosage: 150 MILLIGRAMS
     Route: 065
     Dates: start: 20170110, end: 20170116
  12. CITALOPRAM [Suspect]
     Active Substance: CITALOPRAM HYDROBROMIDE
     Dosage: 20 MILLIGRAMS
     Route: 065
     Dates: start: 20161225, end: 20161225
  13. LAMICTAL [Concomitant]
     Active Substance: LAMOTRIGINE
     Dosage: 50 MILLIGRAMS
     Route: 065
     Dates: start: 20161213, end: 20161219
  14. LAMICTAL [Concomitant]
     Active Substance: LAMOTRIGINE
     Dosage: 75 MILLIGRAMS
     Route: 065
     Dates: start: 20161220, end: 20161226
  15. INDERAL [Concomitant]
     Active Substance: PROPRANOLOL HYDROCHLORIDE
     Dosage: 10 MILLIGRAMS
     Dates: start: 20161220, end: 20161226
  16. INDERAL [Concomitant]
     Active Substance: PROPRANOLOL HYDROCHLORIDE
     Dosage: 10 MILLIGRAMS
     Dates: start: 20161231, end: 20161231
  17. INDERAL [Concomitant]
     Active Substance: PROPRANOLOL HYDROCHLORIDE
     Dosage: 10 MILLIGRAMS
     Dates: start: 20170111, end: 20170113
  18. DOMINAL (PROTHIPENDYL HYDROCHLORIDE) [Suspect]
     Active Substance: PROTHIPENDYL HYDROCHLORIDE
     Dosage: 40 MILLIGRAMS
     Dates: start: 20161216, end: 20161219
  19. LAMICTAL [Concomitant]
     Active Substance: LAMOTRIGINE
     Dosage: 200 MILLIGRAMS
     Dates: start: 20170124
  20. DOXAZOSIN [Concomitant]
     Active Substance: DOXAZOSIN\DOXAZOSIN MESYLATE
     Dates: start: 20170103, end: 20170106
  21. TEMESTA (LORAZEPAM) [Concomitant]
     Active Substance: LORAZEPAM
     Dosage: 1.5 MILLIGRAMS
     Dates: start: 20161225, end: 20161225
  22. TEMESTA (LORAZEPAM) [Concomitant]
     Active Substance: LORAZEPAM
     Dosage: 1 MILLIGRAM
     Dates: start: 20161223, end: 20161224
  23. TEMESTA (LORAZEPAM) [Concomitant]
     Active Substance: LORAZEPAM
     Dates: start: 20161227, end: 20161227
  24. WELLBUTRIN [Concomitant]
     Active Substance: BUPROPION HYDROCHLORIDE
     Dosage: 150 MILLIGRAMS
     Dates: start: 20170118
  25. OLEOVIT [Concomitant]
     Dates: start: 2016
  26. WELLBUTRIN [Concomitant]
     Active Substance: BUPROPION HYDROCHLORIDE
     Dosage: 300 MILLIGRAMS
     Dates: start: 20170111, end: 20170117
  27. DOXAZOSIN [Concomitant]
     Active Substance: DOXAZOSIN\DOXAZOSIN MESYLATE
     Dosage: 2 MILLIGRAM
     Dates: start: 20161223, end: 20161224
  28. DOXAZOSIN [Concomitant]
     Active Substance: DOXAZOSIN\DOXAZOSIN MESYLATE
     Dates: start: 20170107, end: 20170108
  29. PRAXITEN [Suspect]
     Active Substance: OXAZEPAM
     Dosage: 15 MILLIGRAMS
     Route: 065
     Dates: start: 20161208, end: 20161208
  30. PRAXITEN [Suspect]
     Active Substance: OXAZEPAM
     Dosage: 15 MILLIGRAMS
     Route: 065
     Dates: start: 20161224, end: 20161224
  31. LAMICTAL [Concomitant]
     Active Substance: LAMOTRIGINE
     Dosage: 225 MILLIGRAMS
     Dates: start: 20170109, end: 20170109
  32. LAMICTAL [Concomitant]
     Active Substance: LAMOTRIGINE
     Dosage: 125 MILLIGRAMS
     Dates: start: 20170103, end: 20170108
  33. INDERAL [Concomitant]
     Active Substance: PROPRANOLOL HYDROCHLORIDE
     Dosage: 10?20 MILLIGRAMS
     Dates: start: 20161208, end: 20161213
  34. WELLBUTRIN [Concomitant]
     Active Substance: BUPROPION HYDROCHLORIDE
     Dosage: 150 MILLIGRAMS
     Dates: start: 20161227, end: 20170110

REACTIONS (1)
  - Galactorrhoea [Recovering/Resolving]

NARRATIVE: CASE EVENT DATE: 20161224
